FAERS Safety Report 24997723 (Version 1)
Quarter: 2025Q1

REPORT INFORMATION
  Report Type: Spontaneous
  Country: GB (occurrence: GB)
  Receive Date: 20250222
  Receipt Date: 20250222
  Transmission Date: 20250409
  Serious: Yes (Other)
  Sender: AUROBINDO
  Company Number: GB-MHRA-TPP4851325C8887069YC1738850838081

PATIENT
  Age: 62 Year
  Sex: Male
  Weight: 125 kg

DRUGS (7)
  1. AMLODIPINE BESYLATE [Suspect]
     Active Substance: AMLODIPINE BESYLATE
     Indication: Ill-defined disorder
     Dosage: 10 MILLIGRAM, ONCE A DAY
     Route: 065
     Dates: start: 20240502
  2. ATORVASTATIN [Concomitant]
     Active Substance: ATORVASTATIN
     Indication: Ill-defined disorder
     Route: 065
     Dates: start: 20240502
  3. CANDESARTAN [Concomitant]
     Active Substance: CANDESARTAN
     Indication: Ill-defined disorder
     Dosage: 1 DOSAGE FORM, TWO TIMES A DAY [TAKE ONE TABLET TWICE DAILY (TOTAL DOSE 32MG)]
     Route: 065
     Dates: start: 20240502
  4. BECLOMETHASONE DIPROPIONATE [Concomitant]
     Active Substance: BECLOMETHASONE DIPROPIONATE
     Indication: Ill-defined disorder
     Dosage: 2 DOSAGE FORM, TWO TIMES A DAY [INHALE 2 DOSES TWICE DAILY]
     Route: 065
     Dates: start: 20240502
  5. DOXAZOSIN [Concomitant]
     Active Substance: DOXAZOSIN MESYLATE
     Indication: Ill-defined disorder
     Route: 065
     Dates: start: 20240502
  6. ALBUTEROL [Concomitant]
     Active Substance: ALBUTEROL
     Indication: Ill-defined disorder
     Route: 065
     Dates: start: 20240502
  7. LERCANIDIPINE HYDROCHLORIDE [Concomitant]
     Active Substance: LERCANIDIPINE HYDROCHLORIDE
     Indication: Ill-defined disorder
     Dosage: 1 DOSAGE FORM, ONCE A DAY [TAKE ONE TABLET ONCE DAILY ATLEAST 15 MINUTES B...]
     Route: 065
     Dates: start: 20241128

REACTIONS (1)
  - Joint swelling [Recovered/Resolved]
